FAERS Safety Report 4438662-5 (Version None)
Quarter: 2004Q3

REPORT INFORMATION
  Report Type: 
  Country: None (occurrence: None)
  Receive Date: 20040830
  Receipt Date: 20040830
  Transmission Date: 20050211
  Serious: No
  Sender: FDA-Public Use
  Company Number: None

PATIENT
  Sex: Male
  Weight: 88.4514 kg

DRUGS (6)
  1. ZOLOFT [Suspect]
     Indication: AGORAPHOBIA
     Dosage: 50 MG DAY ORAL
     Route: 048
  2. ZOLOFT [Suspect]
     Indication: ANXIETY
     Dosage: 50 MG DAY ORAL
     Route: 048
  3. ZOLOFT [Suspect]
     Indication: DEPRESSION
     Dosage: 50 MG DAY ORAL
     Route: 048
  4. ZOLOFT [Suspect]
     Indication: OBSESSIVE-COMPULSIVE DISORDER
     Dosage: 50 MG DAY ORAL
     Route: 048
  5. CLONAZEPAM [Suspect]
     Indication: ANXIETY
     Dosage: 1 MG 4 TIMES ORAL
     Route: 048
  6. CLONAZEPAM [Suspect]
     Indication: DEPRESSION
     Dosage: 1 MG 4 TIMES ORAL
     Route: 048

REACTIONS (4)
  - DIZZINESS [None]
  - DYSPNOEA [None]
  - HYPERVENTILATION [None]
  - MEDICATION ERROR [None]
